FAERS Safety Report 7482420-4 (Version None)
Quarter: 2011Q2

REPORT INFORMATION
  Report Type: 
  Country: None (occurrence: None)
  Receive Date: 20110516
  Receipt Date: 20110511
  Transmission Date: 20111010
  Serious: Yes (Other)
  Sender: FDA-Public Use
  Company Number: US-PFIZER INC-2004063396

PATIENT
  Sex: Female

DRUGS (3)
  1. NEURONTIN [Suspect]
     Dosage: 300 MG, UNK
     Dates: start: 20011218
  2. NEURONTIN [Suspect]
     Indication: MIGRAINE
     Dosage: UNK
     Dates: start: 20010101, end: 20020101
  3. NEURONTIN [Suspect]
     Dosage: 100 MG, UNK
     Route: 065
     Dates: start: 20011011

REACTIONS (7)
  - DECREASED INTEREST [None]
  - SUICIDAL IDEATION [None]
  - HALLUCINATION, VISUAL [None]
  - HALLUCINATION, AUDITORY [None]
  - AGGRESSION [None]
  - THINKING ABNORMAL [None]
  - DRUG INEFFECTIVE FOR UNAPPROVED INDICATION [None]
